FAERS Safety Report 8561009-X (Version None)
Quarter: 2012Q3

REPORT INFORMATION
  Report Type: 
  Country: None (occurrence: None)
  Receive Date: 20120802
  Receipt Date: 20111123
  Transmission Date: 20120928
  Serious: No
  Sender: FDA-Public Use
  Company Number: US-BRISTOL-MYERS SQUIBB COMPANY-15579493

PATIENT
  Age: 52 Year
  Sex: Male

DRUGS (1)
  1. REYATAZ [Suspect]
     Indication: HIV INFECTION
     Dosage: STARTED WITH 150MG INSTEAD OF 300MG
     Route: 048
     Dates: start: 20090312

REACTIONS (2)
  - DRUG LEVEL DECREASED [None]
  - MEDICATION ERROR [None]
